FAERS Safety Report 8849880 (Version 3)
Quarter: 2013Q2

REPORT INFORMATION
  Report Type: Report from Study
  Country: JP (occurrence: JP)
  Receive Date: 20121019
  Receipt Date: 20130530
  Transmission Date: 20140414
  Serious: Yes (Hospitalization)
  Sender: FDA-Public Use
  Company Number: JP-ROCHE-1142816

PATIENT
  Age: 59 Year
  Sex: Female
  Weight: 50 kg

DRUGS (11)
  1. PEG-INTERFERON ALFA 2A [Suspect]
     Indication: CHRONIC HEPATITIS C
     Route: 058
     Dates: start: 20120724, end: 20120731
  2. PEG-INTERFERON ALFA 2A [Suspect]
     Route: 058
     Dates: start: 20120807, end: 20120814
  3. PEG-INTERFERON ALFA 2A [Suspect]
     Route: 058
     Dates: start: 20120821, end: 20121002
  4. RIBAVIRIN [Suspect]
     Indication: CHRONIC HEPATITIS C
     Route: 048
     Dates: start: 20120724, end: 20120903
  5. RIBAVIRIN [Suspect]
     Route: 058
     Dates: start: 20120904, end: 20121002
  6. BLINDED BI 201335 [Suspect]
     Indication: CHRONIC HEPATITIS C
     Route: 048
     Dates: start: 20120724, end: 20121002
  7. BLOPRESS [Concomitant]
     Indication: HYPERTENSION
     Route: 048
     Dates: start: 2004
  8. MEILAX [Concomitant]
     Indication: INSOMNIA
     Route: 048
  9. CALBLOCK [Concomitant]
     Indication: HYPERTENSION
     Route: 048
     Dates: start: 2004
  10. LOXONIN [Concomitant]
     Indication: PYREXIA
     Route: 048
     Dates: start: 20120724, end: 20121002
  11. TAKEPRON [Concomitant]
     Indication: PROPHYLAXIS AGAINST GASTROINTESTINAL ULCER
     Route: 048
     Dates: start: 20120828, end: 20121002

REACTIONS (5)
  - Erythema multiforme [Recovered/Resolved]
  - Pyrexia [Recovered/Resolved]
  - Decreased appetite [Recovered/Resolved]
  - Malaise [Recovered/Resolved]
  - Drug reaction with eosinophilia and systemic symptoms [Unknown]
